FAERS Safety Report 22865671 (Version 4)
Quarter: 2023Q4

REPORT INFORMATION
  Report Type: Spontaneous
  Country: SG (occurrence: SG)
  Receive Date: 20230825
  Receipt Date: 20231011
  Transmission Date: 20240109
  Serious: Yes (Other)
  Sender: FDA-Public Use
  Company Number: SG-MYLANLABS-2023M1088296

PATIENT
  Age: 54 Year
  Sex: Female
  Weight: 47 kg

DRUGS (2)
  1. DILANTIN [Suspect]
     Active Substance: PHENYTOIN
     Indication: Epilepsy
     Dosage: 100 MILLIGRAM, AM
     Route: 048
     Dates: start: 2018
  2. DILANTIN [Suspect]
     Active Substance: PHENYTOIN
     Dosage: 200 MILLIGRAM, (PM)
     Route: 048
     Dates: start: 2018

REACTIONS (2)
  - Seizure [Recovered/Resolved]
  - Drug level decreased [Recovered/Resolved]

NARRATIVE: CASE EVENT DATE: 20220210
